FAERS Safety Report 14641528 (Version 2)
Quarter: 2019Q1

REPORT INFORMATION
  Report Type: Spontaneous
  Country: DE (occurrence: DE)
  Receive Date: 20180315
  Receipt Date: 20190301
  Transmission Date: 20190417
  Serious: Yes (Hospitalization, Other)
  Sender: FDA-Public Use
  Company Number: DE-TORRENT-00007935

PATIENT
  Age: 64 Year

DRUGS (3)
  1. METFORMIN [Suspect]
     Active Substance: METFORMIN HYDROCHLORIDE
     Indication: TYPE 2 DIABETES MELLITUS
     Dosage: 1000 MG 1-0-1
     Dates: start: 201202
  2. SIMVASTATIN. [Concomitant]
     Active Substance: SIMVASTATIN
     Indication: PRODUCT USED FOR UNKNOWN INDICATION
     Dosage: 10 MG, 0-0-1
  3. METOPROLOL. [Concomitant]
     Active Substance: METOPROLOL
     Indication: HYPERTENSION
     Dosage: 47.5 MG, 1-0-0

REACTIONS (10)
  - Rectal haemorrhage [Unknown]
  - Drug level increased [Recovered/Resolved]
  - Metabolic acidosis [Unknown]
  - Acute kidney injury [Unknown]
  - Dehydration [Unknown]
  - Pleural effusion [Recovered/Resolved]
  - Malaise [Unknown]
  - Ascites [Recovered/Resolved]
  - Lactic acidosis [Unknown]
  - Ventricular tachycardia [Unknown]
